FAERS Safety Report 17509968 (Version 1)
Quarter: 2020Q1

REPORT INFORMATION
  Report Type: Spontaneous
  Country: US (occurrence: US)
  Receive Date: 20200306
  Receipt Date: 20200306
  Transmission Date: 20200409
  Serious: No
  Sender: FDA-Public Use
  Company Number: US-LANNETT COMPANY, INC.-US-2019LAN001102

PATIENT
  Age: 67 Year
  Sex: Female

DRUGS (2)
  1. EYE DROPS                          /00256502/ [Concomitant]
     Active Substance: OXYMETAZOLINE
     Indication: GLAUCOMA
     Dosage: UNK
  2. PANTOPRAZOLE SODIUM. [Suspect]
     Active Substance: PANTOPRAZOLE SODIUM
     Indication: GASTROOESOPHAGEAL REFLUX DISEASE
     Dosage: 40 MG, QD, 30 MINUTES BEFORE BREAKFAST
     Route: 048
     Dates: start: 201908

REACTIONS (12)
  - Paraesthesia [Unknown]
  - Throat irritation [Unknown]
  - Fatigue [Unknown]
  - Abdominal distension [Unknown]
  - Palpitations [Unknown]
  - Abdominal rigidity [Unknown]
  - Drug ineffective [Unknown]
  - Anxiety [Unknown]
  - Dyspepsia [Unknown]
  - Dizziness [Unknown]
  - Vertigo [Unknown]
  - Eructation [Unknown]

NARRATIVE: CASE EVENT DATE: 20191006
